FAERS Safety Report 12821986 (Version 1)
Quarter: 2016Q4

REPORT INFORMATION
  Report Type: Report from Study
  Country: US (occurrence: US)
  Receive Date: 20161007
  Receipt Date: 20161007
  Transmission Date: 20170207
  Serious: Yes (Hospitalization, Other)
  Sender: FDA-Public Use
  Company Number: US-ROCHE-1237840

PATIENT
  Age: 58 Year
  Sex: Female
  Weight: 68.1 kg

DRUGS (6)
  1. BEVACIZUMAB [Suspect]
     Active Substance: BEVACIZUMAB
     Dosage: RECIEVED ON : 08/JAN/2013, 29/JAN/2013, 19/FEB/2013
     Route: 042
     Dates: start: 20121218
  2. PACLITAXEL. [Suspect]
     Active Substance: PACLITAXEL
     Indication: OVARIAN CANCER
     Dosage: LAST DOSE PRIOR TO SAE: 14/MAR/2013
     Route: 042
     Dates: start: 20121127
  3. BEVACIZUMAB [Suspect]
     Active Substance: BEVACIZUMAB
     Indication: OVARIAN EPITHELIAL CANCER
     Dosage: LAST DOSE PRIOR TO SAE: 14/MAR/2013?RECIEVED ON: 12/MAR/2013
     Route: 042
  4. VELIPARIB [Suspect]
     Active Substance: VELIPARIB
     Indication: OVARIAN EPITHELIAL CANCER
     Dosage: 300 MG BID ON DAYS -2-5, LAST DOSE PRIOR TO SAE: 18/MAR/2013?RECIEVED ON : 18/DEC/2012, 29/JAN/2013,
     Route: 048
     Dates: start: 20121127
  5. VELIPARIB [Suspect]
     Active Substance: VELIPARIB
     Dosage: RECIEVED ON 19/FEB/2013, 12/MAR/2013
     Route: 048
     Dates: start: 20160108
  6. CARBOPLATIN. [Suspect]
     Active Substance: CARBOPLATIN
     Indication: OVARIAN CANCER
     Dosage: AUC = 6 OVER 30 MINS ON DAY 1, LAST DOSE PRIOR TO SAE: 14/MAR/2013
     Route: 042
     Dates: start: 20121127

REACTIONS (5)
  - Abdominal pain [Recovering/Resolving]
  - Neutrophil count decreased [Unknown]
  - International normalised ratio increased [Unknown]
  - White blood cell count decreased [Unknown]
  - Anaemia [Unknown]
